FAERS Safety Report 5373766-4 (Version None)
Quarter: 2007Q2

REPORT INFORMATION
  Report Type: 
  Country: None (occurrence: None)
  Receive Date: 20070628
  Receipt Date: 20070621
  Transmission Date: 20071010
  Serious: Yes (Other)
  Sender: FDA-Public Use
  Company Number: US-ROCHE-503453

PATIENT
  Age: 54 Year
  Sex: Male

DRUGS (5)
  1. KLONOPIN [Suspect]
     Dosage: THE PATIENT WAS PRESCRIBED KLONOPIN 'AROUND 1997.' AT THE TIME OF THE REPORT, HE HAD BEEN 'OFF KLON+
     Route: 065
     Dates: end: 20070321
  2. KLONOPIN [Suspect]
     Route: 065
     Dates: end: 20070301
  3. UNSPECIFIED DRUG [Suspect]
     Dosage: DRUG REPORTED AS 'GENERIC CLONAZEPAM.'  ADDITIONAL INDICATION REPORTED AS 'SHAKING.'
     Route: 065
  4. UNSPECIFIED DRUG [Suspect]
     Dosage: DRUG REPORTED AS 'GENERIC CLONAZEPAM.'  ADDITIONAL INDICATION REPORTED AS 'SHAKING.'
     Route: 065
  5. UNSPECIFIED DRUG [Suspect]
     Dosage: DRUG REPORTED AS 'GENERIC CLONAZEPAM.'  ADDITIONAL INDICATION REPORTED AS 'SHAKING.'
     Route: 065

REACTIONS (4)
  - CHEST PAIN [None]
  - DRUG INEFFECTIVE [None]
  - THROMBOSIS MESENTERIC VESSEL [None]
  - TREMOR [None]
